FAERS Safety Report 11216401 (Version 1)
Quarter: 2015Q2

REPORT INFORMATION
  Report Type: Spontaneous
  Country: FR (occurrence: FR)
  Receive Date: 20150624
  Receipt Date: 20150624
  Transmission Date: 20150821
  Serious: Yes (Hospitalization, Other)
  Sender: FDA-Public Use
  Company Number: FR-GLAXOSMITHKLINE-FR2015GSK086962

PATIENT
  Age: 52 Year
  Sex: Female

DRUGS (4)
  1. PYOSTACINE [Suspect]
     Active Substance: PRISTINAMYCIN
     Indication: TONSILLITIS
     Dosage: UNK
     Route: 048
     Dates: start: 20150526, end: 20150528
  2. INEXIUM [Suspect]
     Active Substance: ESOMEPRAZOLE
     Indication: PRODUCT USED FOR UNKNOWN INDICATION
     Dosage: UNK
     Route: 048
     Dates: start: 20150511, end: 20150601
  3. ZINNAT [Suspect]
     Active Substance: CEFUROXIME AXETIL
     Indication: TONSILLITIS
     Dosage: UNK
     Route: 048
     Dates: start: 20150528, end: 20150601
  4. SURGAM [Suspect]
     Active Substance: TIAPROFENIC ACID
     Indication: PRODUCT USED FOR UNKNOWN INDICATION
     Dosage: UNK
     Route: 048
     Dates: start: 20150511, end: 20150601

REACTIONS (1)
  - Agranulocytosis [Recovering/Resolving]

NARRATIVE: CASE EVENT DATE: 20150601
